FAERS Safety Report 16712663 (Version 1)
Quarter: 2019Q3

REPORT INFORMATION
  Report Type: Spontaneous
  Country: BR (occurrence: BR)
  Receive Date: 20190816
  Receipt Date: 20190816
  Transmission Date: 20191004
  Serious: Yes (Hospitalization, Other)
  Sender: FDA-Public Use
  Company Number: PHHY2018BR083858

PATIENT
  Age: 77 Year
  Sex: Female
  Weight: 43 kg

DRUGS (14)
  1. OLCADIL [Suspect]
     Active Substance: CLOXAZOLAM
     Indication: ANXIETY
     Dosage: 1 DF (1 MG), QD, TEN YEARS AGO
     Route: 065
     Dates: start: 2007
  2. LEXOTAN [Suspect]
     Active Substance: BROMAZEPAM
     Indication: PRODUCT USED FOR UNKNOWN INDICATION
     Route: 065
  3. AMOXICILLIN. [Concomitant]
     Active Substance: AMOXICILLIN
     Indication: POST PROCEDURAL COMPLICATION
     Dosage: 1 DF, TID (FROM 15 DAYS AGO)
     Route: 048
     Dates: start: 20190701
  4. RIVOTRIL [Suspect]
     Active Substance: CLONAZEPAM
     Indication: PRODUCT USED FOR UNKNOWN INDICATION
     Route: 065
  5. OLCADIL [Suspect]
     Active Substance: CLOXAZOLAM
     Dosage: 0.5 DF (2 MG), QD
     Route: 048
     Dates: start: 201801
  6. DONAREN [Concomitant]
     Active Substance: TRAZODONE HYDROCHLORIDE
     Indication: ANXIETY
     Dosage: 1 DF, QD (MORNING, FASTING)
     Route: 048
     Dates: start: 20190807
  7. NEOMYCIN. [Concomitant]
     Active Substance: NEOMYCIN
     Indication: HAEMANGIOMA
  8. PANTOPRAZOLE [Suspect]
     Active Substance: PANTOPRAZOLE
     Indication: GASTRITIS
     Dosage: 1 DF, QD (AT MORNING IN FASTING), 5 YEARS AGO
     Route: 048
  9. NEOMYCIN. [Concomitant]
     Active Substance: NEOMYCIN
     Indication: POST PROCEDURAL COMPLICATION
     Dosage: UNK, QD (FROM 15 DAYS AGO)
     Route: 061
     Dates: start: 20190701
  10. VITAMIN D [Concomitant]
     Active Substance: VITAMIN D NOS
     Indication: CALCIFICATION OF MUSCLE
     Dosage: 1 DF, QW
     Route: 048
  11. OLCADIL [Suspect]
     Active Substance: CLOXAZOLAM
     Dosage: 2 DF (1 MG), QD
     Route: 048
     Dates: start: 201801
  12. ALPRAZOLAM. [Suspect]
     Active Substance: ALPRAZOLAM
     Indication: ANXIETY
     Dosage: 0.5 DF, QD
     Route: 048
  13. LABIRIN [Concomitant]
     Active Substance: BETAHISTINE
     Indication: DIZZINESS
     Dosage: 1 DF, QD
     Route: 048
  14. AMOXICILLIN. [Concomitant]
     Active Substance: AMOXICILLIN
     Indication: HAEMANGIOMA

REACTIONS (31)
  - Osteoporosis [Recovering/Resolving]
  - Pain [Not Recovered/Not Resolved]
  - Liver function test abnormal [Recovering/Resolving]
  - Gastritis [Recovering/Resolving]
  - Tremor [Unknown]
  - Anxiety [Unknown]
  - Headache [Not Recovered/Not Resolved]
  - Wrong technique in product usage process [Unknown]
  - Intestinal obstruction [Recovering/Resolving]
  - Leukopenia [Not Recovered/Not Resolved]
  - Osteoarthritis [Not Recovered/Not Resolved]
  - Myotonic dystrophy [Unknown]
  - Blood pressure increased [Unknown]
  - Hand fracture [Unknown]
  - Labyrinthitis [Recovering/Resolving]
  - Meningioma [Recovering/Resolving]
  - Epistaxis [Recovered/Resolved]
  - Blood cholesterol increased [Not Recovered/Not Resolved]
  - Hypertension [Recovering/Resolving]
  - Haemangioma [Recovered/Resolved]
  - Abnormal dreams [Unknown]
  - Ear disorder [Unknown]
  - Depressed mood [Unknown]
  - Somnolence [Not Recovered/Not Resolved]
  - Sluggishness [Recovering/Resolving]
  - Liver function test decreased [Recovering/Resolving]
  - Decreased immune responsiveness [Recovering/Resolving]
  - Malaise [Recovering/Resolving]
  - Carotid artery disease [Not Recovered/Not Resolved]
  - Dry mouth [Not Recovered/Not Resolved]
  - Hypersomnia [Unknown]

NARRATIVE: CASE EVENT DATE: 2017
